FAERS Safety Report 4711409-0 (Version None)
Quarter: 2005Q3

REPORT INFORMATION
  Report Type: 
  Country: None (occurrence: None)
  Receive Date: 20050711
  Receipt Date: 20050626
  Transmission Date: 20060218
  Serious: Yes (Other)
  Sender: FDA-Public Use
  Company Number: 2005ST000041

PATIENT
  Age: 38 Year
  Sex: Male
  Weight: 87.0906 kg

DRUGS (2)
  1. ZEGERID [Suspect]
     Indication: DYSPEPSIA
     Dosage: 40 MG; QD; PO
     Route: 048
     Dates: start: 20050427, end: 20050501
  2. ALLEGRA [Concomitant]

REACTIONS (4)
  - DIPLOPIA [None]
  - HAEMORRHAGE INTRACRANIAL [None]
  - OPTIC NERVE DISORDER [None]
  - VISION BLURRED [None]
